FAERS Safety Report 11279219 (Version 2)
Quarter: 2015Q3

REPORT INFORMATION
  Report Type: Spontaneous
  Country: US (occurrence: US)
  Receive Date: 20150717
  Receipt Date: 20150810
  Transmission Date: 20151125
  Serious: No
  Sender: FDA-Public Use
  Company Number: US-PFIZER INC-2015236880

PATIENT
  Age: 63 Year
  Sex: Female

DRUGS (1)
  1. XELJANZ [Suspect]
     Active Substance: TOFACITINIB CITRATE
     Indication: RHEUMATOID ARTHRITIS
     Dosage: 5 MG, 1X/DAY
     Route: 048
     Dates: start: 20150430, end: 20150701

REACTIONS (3)
  - Urinary tract infection [Recovered/Resolved]
  - Herpes zoster [Recovering/Resolving]
  - Fungal infection [Unknown]

NARRATIVE: CASE EVENT DATE: 201506
